FAERS Safety Report 10384033 (Version 1)
Quarter: 2014Q3

REPORT INFORMATION
  Report Type: Report from Study
  Country: AR (occurrence: AR)
  Receive Date: 20140814
  Receipt Date: 20140814
  Transmission Date: 20150326
  Serious: Yes (Other)
  Sender: FDA-Public Use
  Company Number: PHHY2014AR100572

PATIENT
  Sex: Male

DRUGS (1)
  1. TEGRETOL [Suspect]
     Active Substance: CARBAMAZEPINE
     Indication: EPILEPSY
     Dosage: 1200 MG, DAILY

REACTIONS (4)
  - Vein disorder [Recovered/Resolved]
  - Cardiovascular disorder [Recovered/Resolved]
  - Ulcer [Recovered/Resolved]
  - Road traffic accident [Recovered/Resolved]
